FAERS Safety Report 4283061-2 (Version None)
Quarter: 2004Q1

REPORT INFORMATION
  Report Type: 
  Country: None (occurrence: None)
  Receive Date: 20040129
  Receipt Date: 20040120
  Transmission Date: 20041129
  Serious: Yes (Hospitalization)
  Sender: FDA-Public Use
  Company Number: 2003UW16549

PATIENT
  Age: 79 Year
  Sex: Female
  Weight: 64.8644 kg

DRUGS (12)
  1. IRESSA [Suspect]
  2. TAXOTERE [Suspect]
     Dosage: 36.6 MG DAILY IV
     Route: 042
     Dates: start: 20031003, end: 20031107
  3. TAXOTERE [Suspect]
     Dosage: 73 MG IV
     Route: 042
     Dates: start: 20030731, end: 20030919
  4. GEMCITABINE [Suspect]
     Dosage: 1448 MG IV
     Route: 042
     Dates: start: 20030731, end: 20030919
  5. CARBOPLATIN [Suspect]
     Dosage: 120 IV
     Route: 042
     Dates: start: 20031003, end: 20031107
  6. LORTAB [Concomitant]
  7. CELEBREX [Concomitant]
  8. PEPCID [Concomitant]
  9. MULTIVITAMIN [Concomitant]
  10. IMODIUM [Concomitant]
  11. LOMOTIL [Concomitant]
  12. ASPIRIN [Concomitant]

REACTIONS (13)
  - ABDOMINAL DISTENSION [None]
  - ALANINE AMINOTRANSFERASE INCREASED [None]
  - ASPARTATE AMINOTRANSFERASE INCREASED [None]
  - BLOOD ALKALINE PHOSPHATASE INCREASED [None]
  - CAECITIS [None]
  - DIVERTICULUM INTESTINAL [None]
  - GASTROENTERITIS [None]
  - HAEMANGIOMA OF LIVER [None]
  - HYPERBILIRUBINAEMIA [None]
  - OEDEMA PERIPHERAL [None]
  - PLEURAL EFFUSION [None]
  - RADIATION PNEUMONITIS [None]
  - UNEVALUABLE EVENT [None]
